FAERS Safety Report 18475254 (Version 7)
Quarter: 2021Q1

REPORT INFORMATION
  Report Type: Report from Study
  Country: US (occurrence: US)
  Receive Date: 20201106
  Receipt Date: 20210307
  Transmission Date: 20210419
  Serious: Yes (Hospitalization)
  Sender: FDA-Public Use
  Company Number: NVSC2020US298674

PATIENT
  Age: 80 Year
  Sex: Male

DRUGS (1)
  1. ENTRESTO [Suspect]
     Active Substance: SACUBITRIL\VALSARTAN
     Indication: PRODUCT USED FOR UNKNOWN INDICATION
     Dosage: 50 MG, BID (24/26 MG)
     Route: 048
     Dates: start: 20201014

REACTIONS (9)
  - Weight increased [Unknown]
  - Renal impairment [Unknown]
  - Anaemia [Unknown]
  - Pain [Unknown]
  - Hernia [Unknown]
  - Chest pain [Unknown]
  - Blood count abnormal [Unknown]
  - Swelling [Unknown]
  - Skin ulcer [Unknown]

NARRATIVE: CASE EVENT DATE: 20201104
